FAERS Safety Report 13333856 (Version 2)
Quarter: 2017Q2

REPORT INFORMATION
  Report Type: Spontaneous
  Country: FI (occurrence: FI)
  Receive Date: 20170314
  Receipt Date: 20170417
  Transmission Date: 20170830
  Serious: Yes (Disabling, Other)
  Sender: FDA-Public Use
  Company Number: FI-TEVA-745822ISR

PATIENT
  Sex: Male

DRUGS (6)
  1. LAMOTRIGIN RATIOPHARM 25 MG [Suspect]
     Active Substance: LAMOTRIGINE
     Indication: DEPRESSION
     Dosage: 25-75 MG DAILY
     Route: 065
     Dates: start: 201606, end: 20170220
  2. LAMOTRIGIN RATIOPHARM 25 MG [Suspect]
     Active Substance: LAMOTRIGINE
     Indication: BIPOLAR DISORDER
  3. LAMOTRIGIN ORION [Suspect]
     Active Substance: LAMOTRIGINE
     Indication: BIPOLAR DISORDER
  4. BECLOTIDE [Concomitant]
     Indication: ASTHMA
     Dosage: 25 MICROGRAM DAILY; USED FOR YEARS
     Route: 048
  5. LAMOTRIGIN ORION [Suspect]
     Active Substance: LAMOTRIGINE
     Indication: DEPRESSION
     Route: 048
     Dates: start: 201606, end: 20170220
  6. TENOX 20 MG [Concomitant]
     Indication: INSOMNIA
     Dosage: 0,5-1 TABLETS PER DAY
     Route: 048
     Dates: start: 201606

REACTIONS (23)
  - Oral mucosal discolouration [Recovering/Resolving]
  - Insomnia [Unknown]
  - Electrocardiogram QT prolonged [Recovered/Resolved]
  - Oesophageal pain [Recovering/Resolving]
  - Angina pectoris [Recovering/Resolving]
  - Penis disorder [Unknown]
  - Abdominal pain lower [Recovering/Resolving]
  - Bladder pain [Recovering/Resolving]
  - Eye pain [Recovered/Resolved]
  - Chest pain [Unknown]
  - Vascular occlusion [Unknown]
  - Lacrimation increased [Recovered/Resolved]
  - Chromaturia [Recovered/Resolved]
  - Chest pain [Recovering/Resolving]
  - Mouth ulceration [Recovering/Resolving]
  - Diaphragmatic disorder [Recovered/Resolved]
  - Diaphragmalgia [Recovering/Resolving]
  - Dysphagia [Unknown]
  - Oesophageal pain [Unknown]
  - Chest discomfort [Recovering/Resolving]
  - Heart rate increased [Recovering/Resolving]
  - Penis injury [Recovering/Resolving]
  - Rhinorrhoea [Recovered/Resolved]

NARRATIVE: CASE EVENT DATE: 2016
